FAERS Safety Report 21141393 (Version 1)
Quarter: 2022Q3

REPORT INFORMATION
  Report Type: Spontaneous
  Country: GB (occurrence: GB)
  Receive Date: 20220728
  Receipt Date: 20220728
  Transmission Date: 20221027
  Serious: Yes (Other)
  Sender: FDA-Public Use
  Company Number: None

PATIENT
  Age: 50 Year
  Sex: Female
  Weight: 57 kg

DRUGS (5)
  1. ATORVASTATIN [Suspect]
     Active Substance: ATORVASTATIN
     Dosage: AT NIGHT
     Route: 048
     Dates: start: 20210712
  2. BETNOVATE [Concomitant]
     Active Substance: BETAMETHASONE
     Dosage: APPLY
     Dates: start: 20220317, end: 20220414
  3. ESTRADERM [Concomitant]
     Active Substance: ESTRADIOL
     Dosage: APPLY
     Dates: start: 20210823
  4. RAMIPRIL [Concomitant]
     Active Substance: RAMIPRIL
     Dates: start: 20210607
  5. MINERAL OIL\PARAFFIN [Concomitant]
     Active Substance: MINERAL OIL\PARAFFIN
     Dosage: APPLY FREQUENTLY TO KEEP SKIN MOIST
     Dates: start: 20220317, end: 20220401

REACTIONS (2)
  - Paraesthesia [Unknown]
  - Myopathy [Unknown]
